FAERS Safety Report 9958016 (Version 1)
Quarter: 2014Q1

REPORT INFORMATION
  Report Type: Report from Study
  Country: US (occurrence: US)
  Receive Date: 20140304
  Receipt Date: 20140304
  Transmission Date: 20141002
  Serious: No
  Sender: FDA-Public Use
  Company Number: US-ABBVIE-13P-163-1091403-00

PATIENT
  Age: 82 Year
  Sex: Male
  Weight: 84.9 kg

DRUGS (3)
  1. HUMIRA [Suspect]
     Indication: CROHN^S DISEASE
     Dates: start: 201209, end: 201209
  2. HUMIRA [Suspect]
     Dosage: 2 WEEKS AFTER 160 MG DOSE
     Dates: start: 2012, end: 2012
  3. HUMIRA [Suspect]
     Dosage: 4 WEEKS AFTER 160 MG DOSE
     Dates: start: 2012

REACTIONS (1)
  - Gastroenteritis viral [Recovered/Resolved]
